FAERS Safety Report 18375626 (Version 1)
Quarter: 2020Q4

REPORT INFORMATION
  Report Type: Other
  Country: CA (occurrence: CA)
  Receive Date: 20201013
  Receipt Date: 20201013
  Transmission Date: 20210114
  Serious: Yes (Hospitalization, Other)
  Sender: FDA-Public Use
  Company Number: CA-APOTEX-2020AP019532

PATIENT
  Age: 13 Year
  Sex: Female

DRUGS (3)
  1. ADALIMUMAB [Suspect]
     Active Substance: ADALIMUMAB
     Indication: COLITIS ULCERATIVE
     Dosage: 40 MILLIGRAM
     Route: 058
  2. HUMIRA [Suspect]
     Active Substance: ADALIMUMAB
     Indication: COLITIS ULCERATIVE
     Dosage: 40 MILLIGRAM
     Route: 058
  3. CELECOXIB. [Suspect]
     Active Substance: CELECOXIB
     Indication: CHRONIC RECURRENT MULTIFOCAL OSTEOMYELITIS
     Dosage: UNK
     Route: 065

REACTIONS (8)
  - Haematochezia [Not Recovered/Not Resolved]
  - Abdominal pain [Not Recovered/Not Resolved]
  - Oral pain [Not Recovered/Not Resolved]
  - Gingival erythema [Not Recovered/Not Resolved]
  - Chronic recurrent multifocal osteomyelitis [Not Recovered/Not Resolved]
  - Swelling face [Not Recovered/Not Resolved]
  - Diarrhoea [Not Recovered/Not Resolved]
  - Localised infection [Not Recovered/Not Resolved]
